FAERS Safety Report 6506904 (Version 2)
Quarter: 2016Q2

REPORT INFORMATION
  Report Type: Spontaneous
  Country: US (occurrence: US)
  Receive Date: 20071217
  Receipt Date: 20160624
  Transmission Date: 20160815
  Serious: No
  Sender: FDA-Public Use
  Company Number: US-ASTRAZENECA-2007UW16890

PATIENT
  Age: 730 Month
  Sex: Female
  Weight: 56.7 kg

DRUGS (11)
  1. QUETIAPINE FUMARATE. [Suspect]
     Active Substance: QUETIAPINE FUMARATE
     Indication: GRIEF REACTION
     Dosage: 6.25MG IN THE MORNING, 6.25MG IN THE AFTERNOON, AND 12.5MG AT NIGHT
     Route: 048
     Dates: start: 20160405, end: 20160407
  2. QUETIAPINE FUMARATE. [Suspect]
     Active Substance: QUETIAPINE FUMARATE
     Indication: PSYCHIATRIC SYMPTOM
     Route: 048
     Dates: start: 20160407
  3. QUETIAPINE FUMARATE. [Suspect]
     Active Substance: QUETIAPINE FUMARATE
     Indication: NERVOUSNESS
     Route: 048
     Dates: start: 20160407
  4. DOXEPIN [Concomitant]
     Active Substance: DOXEPIN
  5. ATIVAN [Concomitant]
     Active Substance: LORAZEPAM
     Indication: ANXIETY
     Route: 048
     Dates: start: 1990
  6. QUETIAPINE FUMARATE. [Suspect]
     Active Substance: QUETIAPINE FUMARATE
     Indication: NERVOUSNESS
     Dosage: 6.25MG IN THE MORNING, 6.25MG IN THE AFTERNOON, AND 12.5MG AT NIGHT
     Route: 048
     Dates: start: 20160405, end: 20160407
  7. QUETIAPINE FUMARATE. [Suspect]
     Active Substance: QUETIAPINE FUMARATE
     Indication: GRIEF REACTION
     Route: 048
     Dates: start: 20160407
  8. CRESTOR [Suspect]
     Active Substance: ROSUVASTATIN CALCIUM
     Indication: BLOOD CHOLESTEROL ABNORMAL
     Dosage: 10.0MG UNKNOWN
     Route: 048
     Dates: start: 200706
  9. QUETIAPINE FUMARATE. [Suspect]
     Active Substance: QUETIAPINE FUMARATE
     Indication: PSYCHIATRIC SYMPTOM
     Dosage: 6.25MG IN THE MORNING, 6.25MG IN THE AFTERNOON, AND 12.5MG AT NIGHT
     Route: 048
     Dates: start: 20160405, end: 20160407
  10. CRESTOR [Suspect]
     Active Substance: ROSUVASTATIN CALCIUM
     Indication: BLOOD CHOLESTEROL ABNORMAL
     Dosage: 5.0MG UNKNOWN
     Route: 048
     Dates: start: 200706
  11. ATENOLOL. [Concomitant]
     Active Substance: ATENOLOL

REACTIONS (8)
  - Drug dose omission [Unknown]
  - Hot flush [Unknown]
  - Depressed mood [Unknown]
  - Histrionic personality disorder [Unknown]
  - Crying [Unknown]
  - Hyperhidrosis [Unknown]
  - Agitation [Unknown]
  - Nervousness [Unknown]

NARRATIVE: CASE EVENT DATE: 201604
